FAERS Safety Report 6762005-5 (Version None)
Quarter: 2010Q2

REPORT INFORMATION
  Report Type: 
  Country: None (occurrence: None)
  Receive Date: 20100609
  Receipt Date: 20100601
  Transmission Date: 20101027
  Serious: Yes (Hospitalization)
  Sender: FDA-Public Use
  Company Number: US-ASTRAZENECA-2010SE13173

PATIENT
  Age: 42 Year
  Sex: Male

DRUGS (6)
  1. SEROQUEL XR [Suspect]
     Indication: DEPRESSION
     Route: 048
     Dates: start: 20080101, end: 20100201
  2. SEROQUEL XR [Suspect]
     Indication: ANXIETY
     Route: 048
     Dates: start: 20080101, end: 20100201
  3. LOVAZA [Concomitant]
  4. REMERON [Concomitant]
  5. VISTARIL [Concomitant]
  6. BENADRYL [Concomitant]

REACTIONS (6)
  - EOSINOPHILIA [None]
  - HAEMANGIOMA OF LIVER [None]
  - HEPATIC STEATOSIS [None]
  - JAUNDICE [None]
  - LIVER INJURY [None]
  - RENAL CYST [None]
